FAERS Safety Report 6573595-X (Version None)
Quarter: 2010Q1

REPORT INFORMATION
  Report Type: 
  Country: None (occurrence: None)
  Receive Date: 20100208
  Receipt Date: 20100203
  Transmission Date: 20100710
  Serious: Yes (Death, Life-Threatening, Other)
  Sender: FDA-Public Use
  Company Number: CA-ASTRAZENECA-2010SE04978

PATIENT
  Age: 58 Year
  Sex: Female

DRUGS (2)
  1. LIDOCAINE [Suspect]
     Indication: LOCAL ANAESTHESIA
     Dosage: 6.3   MG/KG, 0.6 ML/KG VOLUME
     Route: 053
  2. DIGOXIN [Concomitant]

REACTIONS (4)
  - APNOEA [None]
  - CONVULSION [None]
  - ELECTROCARDIOGRAM ABNORMAL [None]
  - PULSE ABSENT [None]
